FAERS Safety Report 23063808 (Version 1)
Quarter: 2023Q4

REPORT INFORMATION
  Report Type: Spontaneous
  Country: FR (occurrence: FR)
  Receive Date: 20231013
  Receipt Date: 20231013
  Transmission Date: 20240110
  Serious: Yes (Life-Threatening)
  Sender: FDA-Public Use
  Company Number: None

PATIENT
  Age: 34 Year
  Sex: Female

DRUGS (5)
  1. REPAGLINIDE [Suspect]
     Active Substance: REPAGLINIDE
     Indication: Intentional overdose
     Dosage: 9 TABS OF 2 MG
     Dates: start: 20230911, end: 20230911
  2. NEFOPAM HYDROCHLORIDE [Suspect]
     Active Substance: NEFOPAM HYDROCHLORIDE
     Indication: Intentional overdose
     Dates: start: 20230911, end: 20230911
  3. RIVOTRIL [Suspect]
     Active Substance: CLONAZEPAM
     Indication: Intentional overdose
     Dates: start: 20230911, end: 20230911
  4. LOXAPINE [Suspect]
     Active Substance: LOXAPINE
     Indication: Intentional overdose
     Dosage: 5 TABS OF 50 MG
     Dates: start: 20230911, end: 20230911
  5. MIDAZOLAM [Suspect]
     Active Substance: MIDAZOLAM
     Indication: Intentional overdose
     Dates: start: 20230911, end: 20230911

REACTIONS (2)
  - Depressed level of consciousness [Recovering/Resolving]
  - Hypoglycaemia [Recovered/Resolved]

NARRATIVE: CASE EVENT DATE: 20230911
